FAERS Safety Report 9790955 (Version 8)
Quarter: 2014Q1

REPORT INFORMATION
  Report Type: Spontaneous
  Country: JP (occurrence: JP)
  Receive Date: 20131231
  Receipt Date: 20140219
  Transmission Date: 20141002
  Serious: Yes (Other)
  Sender: FDA-Public Use
  Company Number: JP-PFIZER INC-2013281192

PATIENT
  Age: 74 Year
  Sex: Female
  Weight: 42 kg

DRUGS (8)
  1. CELECOX [Suspect]
     Indication: CONTUSION
     Dosage: 100 MG, 2X/DAY
     Route: 048
     Dates: start: 20130819, end: 20130830
  2. AVAPRO [Concomitant]
     Indication: HYPERTENSION
     Dosage: 100 MG, 1X/DAY
     Route: 048
     Dates: start: 2003
  3. CONIEL [Concomitant]
     Indication: HYPERTENSION
     Dosage: 4 MG, 1X/DAY
     Route: 048
     Dates: start: 2003
  4. LIPITOR [Concomitant]
     Indication: HYPERLIPIDAEMIA
     Dosage: 10 MG, 1X/DAY
     Route: 048
     Dates: start: 2003
  5. DAIPIN [Concomitant]
     Indication: GASTRITIS
     Dosage: 1 MG, 3X/DAY
     Route: 048
     Dates: start: 1993
  6. NEO UMOR [Concomitant]
     Indication: GASTRITIS
     Dosage: 1 G, 3X/DAY
     Route: 048
     Dates: start: 1993
  7. SELBEX [Concomitant]
     Indication: GASTRITIS
     Dosage: 0.5 G, 3X/DAY
     Route: 048
     Dates: start: 1993
  8. MAG-LAX [Concomitant]
     Indication: GASTRITIS
     Dosage: 0.4 G, 3X/DAY
     Route: 048
     Dates: start: 1993

REACTIONS (10)
  - Erythema multiforme [Recovered/Resolved]
  - Blood alkaline phosphatase increased [Recovering/Resolving]
  - Gamma-glutamyltransferase increased [Recovered/Resolved]
  - Blood urea increased [Recovering/Resolving]
  - Pyrexia [Recovered/Resolved]
  - Pain [Recovered/Resolved]
  - Stomatitis [Recovering/Resolving]
  - Abdominal pain upper [Unknown]
  - Back pain [Unknown]
  - Dysgeusia [Unknown]
